FAERS Safety Report 13615362 (Version 4)
Quarter: 2025Q2

REPORT INFORMATION
  Report Type: Report from Study
  Country: DE (occurrence: DE)
  Receive Date: 20170606
  Receipt Date: 20250626
  Transmission Date: 20250717
  Serious: Yes (Other)
  Sender: BOEHRINGER INGELHEIM
  Company Number: DE-BOEHRINGERINGELHEIM-2017-BI-027308

PATIENT
  Age: 64 Year
  Sex: Female
  Weight: 81.4 kg

DRUGS (2)
  1. NINTEDANIB [Suspect]
     Active Substance: NINTEDANIB
     Indication: Lung adenocarcinoma
     Route: 048
     Dates: start: 20170413, end: 20170424
  2. DOCETAXEL [Suspect]
     Active Substance: DOCETAXEL
     Indication: Lung adenocarcinoma
     Dosage: TOTAL DAILY DOSE: 75MG/M2 BSA?FORM OF ADMIN: LIQUID
     Route: 042
     Dates: start: 20170412

REACTIONS (2)
  - Febrile neutropenia [Recovered/Resolved]
  - Nausea [Recovered/Resolved]

NARRATIVE: CASE EVENT DATE: 20170421
